FAERS Safety Report 7449833-8 (Version None)
Quarter: 2011Q2

REPORT INFORMATION
  Report Type: 
  Country: None (occurrence: None)
  Receive Date: 20110428
  Receipt Date: 20110428
  Transmission Date: 20111010
  Serious: Yes (Other)
  Sender: FDA-Public Use
  Company Number: None

PATIENT
  Age: 4 Year
  Sex: Female
  Weight: 21.7727 kg

DRUGS (2)
  1. FLOVENT [Suspect]
     Indication: ASTHMA
     Dosage: 1 PUFF 1 PER DAY INHAL
     Route: 055
     Dates: start: 20090703, end: 20110303
  2. QVAR 40 [Suspect]
     Indication: ASTHMA
     Dosage: 2 PUFFS ONCE PER DAY INHAL
     Route: 055
     Dates: start: 20110402, end: 20110414

REACTIONS (7)
  - MALAISE [None]
  - CONDITION AGGRAVATED [None]
  - ABNORMAL BEHAVIOUR [None]
  - ANGER [None]
  - AGGRESSION [None]
  - SCREAMING [None]
  - ASTHMA [None]
